FAERS Safety Report 4315591-9 (Version None)
Quarter: 2004Q1

REPORT INFORMATION
  Report Type: 
  Country: None (occurrence: None)
  Receive Date: 20040311
  Receipt Date: 20040311
  Transmission Date: 20041129
  Serious: Yes (Other)
  Sender: FDA-Public Use
  Company Number: None

PATIENT
  Age: 23 Year
  Sex: Female
  Weight: 69.8 kg

DRUGS (15)
  1. GAMUNEX [Suspect]
     Indication: IMMUNODEFICIENCY
     Dosage: 60 GRAMS EVERY 3 WE INTRAVENOUS
     Route: 042
     Dates: start: 20031118, end: 20040302
  2. ALBUTEROL [Concomitant]
  3. DOXYCYCLINE [Concomitant]
  4. BACTRIM [Concomitant]
  5. FLONASE [Concomitant]
  6. MULTI-VITAMIN [Concomitant]
  7. SUDAFED S.A. [Concomitant]
  8. ALLEGRA [Concomitant]
  9. FLOVENT [Concomitant]
  10. CYCLESSA [Concomitant]
  11. CELEXA [Concomitant]
  12. ADVAIR DISKUS 100/50 [Concomitant]
  13. BENADRYL [Concomitant]
  14. TYLENOL (CAPLET) [Concomitant]
  15. PREDNISONE [Concomitant]

REACTIONS (2)
  - VISUAL DISTURBANCE [None]
  - VISUAL FIELD DEFECT [None]
